FAERS Safety Report 6386294-4 (Version None)
Quarter: 2009Q4

REPORT INFORMATION
  Report Type: 
  Country: None (occurrence: None)
  Receive Date: 20091002
  Receipt Date: 20090917
  Transmission Date: 20100525
  Serious: Yes (Other)
  Sender: FDA-Public Use
  Company Number: DE-GENENTECH-291317

PATIENT
  Sex: Female

DRUGS (6)
  1. XOLAIR [Suspect]
     Indication: DRUG USE FOR UNKNOWN INDICATION
     Dosage: 150 MG, Q14D
     Dates: start: 20081201
  2. PREDNISOLONE [Concomitant]
     Indication: DRUG USE FOR UNKNOWN INDICATION
  3. AZITHROMYCIN [Concomitant]
     Indication: DRUG USE FOR UNKNOWN INDICATION
  4. SPIRIVA [Concomitant]
     Indication: DRUG USE FOR UNKNOWN INDICATION
  5. COLISTIN [Concomitant]
     Indication: DRUG USE FOR UNKNOWN INDICATION
  6. ATROVENT [Concomitant]
     Indication: DRUG USE FOR UNKNOWN INDICATION

REACTIONS (2)
  - ADENOVIRUS INFECTION [None]
  - PNEUMONIA [None]
